FAERS Safety Report 22156995 (Version 1)
Quarter: 2023Q1

REPORT INFORMATION
  Report Type: Spontaneous
  Country: PK (occurrence: PK)
  Receive Date: 20230330
  Receipt Date: 20230330
  Transmission Date: 20230418
  Serious: Yes (Death)
  Sender: FDA-Public Use
  Company Number: PK-PFIZER INC-2021504729

PATIENT
  Age: 65 Year
  Sex: Female

DRUGS (3)
  1. IBRANCE [Suspect]
     Active Substance: PALBOCICLIB
     Indication: Breast cancer metastatic
     Dosage: 125 MG, ONCE DAILY (21 DAYS ON AND 7 DAYS OFF)
     Route: 048
     Dates: start: 20210506, end: 202303
  2. TRESORIX [Concomitant]
     Dosage: UNK
  3. FEMARA [Concomitant]
     Active Substance: LETROZOLE
     Dosage: 2.5 MG, 1X/DAY

REACTIONS (3)
  - Death [Fatal]
  - Off label use [Unknown]
  - Neoplasm progression [Unknown]
